FAERS Safety Report 7846191-1 (Version None)
Quarter: 2011Q4

REPORT INFORMATION
  Report Type: 
  Country: None (occurrence: None)
  Receive Date: 20111025
  Receipt Date: 20111014
  Transmission Date: 20120403
  Serious: Yes (Other)
  Sender: FDA-Public Use
  Company Number: US-BAXTER-2011BH032927

PATIENT
  Age: 4 Year
  Sex: Male

DRUGS (3)
  1. M.V.I.-12 [Suspect]
     Indication: PARENTERAL NUTRITION
     Route: 042
  2. MAGNESIUM SULFATE [Suspect]
     Indication: PARENTERAL NUTRITION
     Route: 042
  3. TRAVASOL 10% [Suspect]
     Indication: PARENTERAL NUTRITION
     Route: 042

REACTIONS (1)
  - ANAPHYLACTOID REACTION [None]
